FAERS Safety Report 23479263 (Version 3)
Quarter: 2024Q4

REPORT INFORMATION
  Report Type: Spontaneous
  Country: US (occurrence: US)
  Receive Date: 20240205
  Receipt Date: 20241129
  Transmission Date: 20250114
  Serious: No
  Sender: CSL BEHRING
  Company Number: US-BEH-2024168209

PATIENT
  Sex: Female
  Weight: 51.701 kg

DRUGS (2)
  1. HIZENTRA [Suspect]
     Active Substance: HUMAN IMMUNOGLOBULIN G
     Indication: Primary immunodeficiency syndrome
     Dosage: 5 GRAM, QW
     Route: 065
     Dates: start: 20240115
  2. HIZENTRA [Suspect]
     Active Substance: HUMAN IMMUNOGLOBULIN G
     Dosage: 3 GRAM, QW
     Route: 065
     Dates: start: 20240115

REACTIONS (7)
  - Sensory disturbance [Unknown]
  - Catheter site injury [Unknown]
  - Infusion site bruising [Not Recovered/Not Resolved]
  - Discomfort [Unknown]
  - Infusion site vesicles [Unknown]
  - Lymphadenopathy [Unknown]
  - Intentional product misuse [Unknown]
